FAERS Safety Report 22166218 (Version 1)
Quarter: 2023Q2

REPORT INFORMATION
  Report Type: Spontaneous
  Country: DK (occurrence: DK)
  Receive Date: 20230403
  Receipt Date: 20230403
  Transmission Date: 20230721
  Serious: Yes (Hospitalization)
  Sender: FDA-Public Use
  Company Number: None

PATIENT
  Age: 24 Year
  Sex: Female
  Weight: 60 kg

DRUGS (2)
  1. ASACOL [Suspect]
     Active Substance: MESALAMINE
     Indication: Colitis ulcerative
     Dosage: 3200 MILLIGRAM, QD
     Route: 048
     Dates: start: 20201126, end: 20201230
  2. MESALAMINE [Suspect]
     Active Substance: MESALAMINE
     Indication: Colitis ulcerative
     Dosage: 1 GRAM, QD
     Route: 054
     Dates: start: 20201126, end: 20201230

REACTIONS (4)
  - Myocarditis [Unknown]
  - Chest pain [Unknown]
  - Pyrexia [Unknown]
  - Pericarditis [Unknown]

NARRATIVE: CASE EVENT DATE: 20201226
